FAERS Safety Report 7903551-8 (Version None)
Quarter: 2011Q4

REPORT INFORMATION
  Report Type: 
  Country: None (occurrence: None)
  Receive Date: 20111027
  Receipt Date: 20110707
  Transmission Date: 20120403
  Serious: Yes (Hospitalization)
  Sender: FDA-Public Use
  Company Number: 2011-2003

PATIENT
  Age: 13 Year
  Sex: Male
  Weight: 33.4 kg

DRUGS (2)
  1. INCRELEX [Suspect]
     Indication: GROWTH HORMONE DEFICIENCY
     Dosage: 0.8 ML (0.4 ML, 2 IN 1 D),SUBCUTANEOUS ; 0.4 ML (0.2 ML,2 IN 1 D),SUBCUTANEOUS
     Route: 058
     Dates: start: 20110118, end: 20110613
  2. INCRELEX [Suspect]
     Indication: BODY HEIGHT BELOW NORMAL
     Dosage: 0.8 ML (0.4 ML, 2 IN 1 D),SUBCUTANEOUS ; 0.4 ML (0.2 ML,2 IN 1 D),SUBCUTANEOUS
     Route: 058
     Dates: start: 20110118, end: 20110613

REACTIONS (2)
  - INTRACRANIAL PRESSURE INCREASED [None]
  - HEADACHE [None]
